FAERS Safety Report 25509278 (Version 1)
Quarter: 2025Q3

REPORT INFORMATION
  Report Type: Spontaneous
  Country: EU (occurrence: EU)
  Receive Date: 20250703
  Receipt Date: 20250703
  Transmission Date: 20251020
  Serious: Yes (Other)
  Sender: BRISTOL-MYERS SQUIBB COMPANY
  Company Number: EU-BRISTOL-MYERS SQUIBB COMPANY-2025-093998

PATIENT
  Age: 75 Year
  Sex: Male
  Weight: 84 kg

DRUGS (1)
  1. OPDIVO [Suspect]
     Active Substance: NIVOLUMAB
     Indication: Pleural mesothelioma malignant
     Dosage: EVERY 2 WEEKS
     Route: 042
     Dates: start: 20220711, end: 20240229

REACTIONS (1)
  - Bronchial carcinoma [Unknown]
